FAERS Safety Report 10370461 (Version 2)
Quarter: 2014Q3

REPORT INFORMATION
  Report Type: Spontaneous
  Country: US (occurrence: US)
  Receive Date: 20140808
  Receipt Date: 20140812
  Transmission Date: 20150326
  Serious: No
  Sender: FDA-Public Use
  Company Number: US-BAYER-2014-114731

PATIENT
  Age: 76 Year
  Sex: Male
  Weight: 73 kg

DRUGS (9)
  1. NASONEX [Concomitant]
     Active Substance: MOMETASONE FUROATE
  2. LOVASTATIN. [Concomitant]
     Active Substance: LOVASTATIN
  3. ALEVE [Suspect]
     Active Substance: NAPROXEN SODIUM
     Indication: PLEURISY
     Dosage: 4 DF, ONCE
     Route: 048
     Dates: start: 20140728, end: 20140728
  4. ATENOLOL. [Concomitant]
     Active Substance: ATENOLOL
  5. FINASTERIDE. [Concomitant]
     Active Substance: FINASTERIDE
  6. FOSINOPRIL SODIUM. [Concomitant]
     Active Substance: FOSINOPRIL SODIUM
  7. DOXAZOSIN [Concomitant]
     Active Substance: DOXAZOSIN\DOXAZOSIN MESYLATE
  8. ALEVE [Suspect]
     Active Substance: NAPROXEN SODIUM
     Indication: PLEURISY
     Dosage: 2 DF, QD
     Route: 048
  9. BAYER LOW DOSE [Concomitant]
     Active Substance: ASPIRIN
     Dosage: 1 DF, QD
     Route: 048

REACTIONS (3)
  - Incorrect dose administered [None]
  - Inappropriate schedule of drug administration [None]
  - Off label use [None]

NARRATIVE: CASE EVENT DATE: 20140728
